FAERS Safety Report 11118714 (Version 4)
Quarter: 2015Q2

REPORT INFORMATION
  Report Type: Report from Study
  Country: AU (occurrence: AU)
  Receive Date: 20150518
  Receipt Date: 20150605
  Transmission Date: 20150821
  Serious: Yes (Hospitalization)
  Sender: FDA-Public Use
  Company Number: AU-JNJFOC-20150510599

PATIENT
  Age: 58 Year
  Sex: Male
  Weight: 93 kg

DRUGS (11)
  1. REMICADE [Suspect]
     Active Substance: INFLIXIMAB
     Indication: COLITIS ULCERATIVE
     Route: 042
     Dates: start: 20150119
  2. MINAX [Concomitant]
     Active Substance: METAMIZOLE
     Route: 065
  3. REMICADE [Suspect]
     Active Substance: INFLIXIMAB
     Indication: COLITIS ULCERATIVE
     Route: 042
     Dates: start: 20150511, end: 20150511
  4. ASPIRIN. [Concomitant]
     Active Substance: ASPIRIN
     Indication: CARDIAC DISORDER
     Route: 065
  5. BUSCOPAN [Concomitant]
     Active Substance: BUTYLSCOPOLAMINE BROMIDE
     Indication: ABDOMINAL PAIN
     Dosage: DAILY DOSE AS REQUIRED.
     Route: 065
  6. CELESTAN [Concomitant]
     Active Substance: BETAMETHASONE
     Route: 065
  7. PROMETHAZINE [Concomitant]
     Active Substance: PROMETHAZINE\PROMETHAZINE HYDROCHLORIDE
     Indication: PREMEDICATION
     Route: 042
     Dates: start: 20150511
  8. HYDROCORTISONE. [Concomitant]
     Active Substance: HYDROCORTISONE
     Indication: PREMEDICATION
     Route: 042
     Dates: start: 20150511
  9. GASTROSTOP [Concomitant]
     Indication: DIARRHOEA
     Dosage: DAILY DOSE AS REQUIRED.
     Route: 065
  10. MINIPRES [Concomitant]
     Route: 065
  11. FOLATE [Concomitant]
     Active Substance: FOLATE SODIUM
     Route: 065

REACTIONS (3)
  - Infusion related reaction [Recovered/Resolved]
  - Muscle tightness [Recovered/Resolved]
  - Chest discomfort [Recovered/Resolved]

NARRATIVE: CASE EVENT DATE: 20150511
